FAERS Safety Report 10197290 (Version 3)
Quarter: 2014Q2

REPORT INFORMATION
  Report Type: Spontaneous
  Country: JP (occurrence: JP)
  Receive Date: 20140527
  Receipt Date: 20140624
  Transmission Date: 20141212
  Serious: Yes (Other)
  Sender: FDA-Public Use
  Company Number: JP-GLAXOSMITHKLINE-B0996525A

PATIENT
  Age: 68 Year
  Sex: Male

DRUGS (5)
  1. SAMTIREL [Suspect]
     Indication: PNEUMOCYSTIS JIROVECII PNEUMONIA
     Dosage: 5ML TWICE PER DAY
     Route: 048
     Dates: start: 20130731, end: 20130820
  2. SAMTIREL [Suspect]
     Indication: ANTIFUNGAL PROPHYLAXIS
     Dosage: 10ML PER DAY
     Route: 048
     Dates: start: 20140304
  3. BAKTAR [Suspect]
     Indication: ANTIFUNGAL PROPHYLAXIS
     Route: 048
  4. BAKTAR [Suspect]
     Indication: ANTIFUNGAL PROPHYLAXIS
     Route: 048
     Dates: start: 20130824, end: 20140303
  5. PREDONINE [Concomitant]
     Route: 065

REACTIONS (1)
  - White blood cell count decreased [Not Recovered/Not Resolved]
